FAERS Safety Report 5339366-7 (Version None)
Quarter: 2007Q2

REPORT INFORMATION
  Report Type: 
  Country: None (occurrence: None)
  Receive Date: 20070322
  Receipt Date: 20061121
  Transmission Date: 20071010
  Serious: Yes (Other)
  Sender: FDA-Public Use
  Company Number: 200613641BCC

PATIENT
  Age: 75 Year
  Sex: Female
  Weight: 68.0396 kg

DRUGS (6)
  1. ALEVE [Suspect]
     Indication: BACK PAIN
     Dosage: 220 MG, ONCE; ORAL
     Route: 048
     Dates: start: 20060810
  2. ASPIRIN [Suspect]
     Indication: ISCHAEMIC HEART DISEASE PROPHYLAXIS
     Dosage: 81 MG, QD; ORAL
     Route: 048
     Dates: start: 19960101
  3. SYNTHROID [Concomitant]
  4. ASCORBIC ACID [Concomitant]
  5. CALCIUM CHLORIDE [Concomitant]
  6. CENTRUM SILVER [Concomitant]

REACTIONS (2)
  - DYSPNOEA [None]
  - WHEEZING [None]
